FAERS Safety Report 20228060 (Version 2)
Quarter: 2022Q1

REPORT INFORMATION
  Report Type: Report from Study
  Country: CO (occurrence: CO)
  Receive Date: 20211224
  Receipt Date: 20220110
  Transmission Date: 20220423
  Serious: Yes (Other)
  Sender: FDA-Public Use
  Company Number: CO-ABBVIE-21K-036-3962769-00

PATIENT
  Sex: Female
  Weight: 84 kg

DRUGS (3)
  1. HUMIRA [Suspect]
     Active Substance: ADALIMUMAB
     Indication: Ankylosing spondylitis
     Route: 058
     Dates: start: 20180217, end: 20211129
  2. HUMIRA [Suspect]
     Active Substance: ADALIMUMAB
     Route: 058
  3. COVID-19 VACCINE NOS [Suspect]
     Active Substance: COVID-19 VACCINE NOS
     Indication: COVID-19 immunisation
     Dosage: 1ST DOSE
     Route: 030
     Dates: start: 20210608, end: 20210608

REACTIONS (37)
  - Intervertebral disc protrusion [Not Recovered/Not Resolved]
  - Illness [Not Recovered/Not Resolved]
  - Monocyte count increased [Recovering/Resolving]
  - Erythroblast count decreased [Recovering/Resolving]
  - Loss of personal independence in daily activities [Recovering/Resolving]
  - Joint swelling [Unknown]
  - Dizziness [Recovered/Resolved]
  - Constipation [Recovering/Resolving]
  - Spinal disorder [Not Recovered/Not Resolved]
  - Weight increased [Recovering/Resolving]
  - Speech disorder [Recovering/Resolving]
  - Hypokinesia [Recovering/Resolving]
  - Costochondritis [Unknown]
  - Spinal disorder [Not Recovered/Not Resolved]
  - Kyphosis [Not Recovered/Not Resolved]
  - Sleep apnoea syndrome [Not Recovered/Not Resolved]
  - Diabetes mellitus [Not Recovered/Not Resolved]
  - Abdominal distension [Recovering/Resolving]
  - Fibromyalgia [Recovering/Resolving]
  - Dyspepsia [Not Recovered/Not Resolved]
  - Glucose tolerance impaired [Recovering/Resolving]
  - Bone disorder [Not Recovered/Not Resolved]
  - Arthritis [Recovering/Resolving]
  - Pulmonary pain [Recovering/Resolving]
  - Arthralgia [Recovering/Resolving]
  - Pain in extremity [Recovering/Resolving]
  - Back pain [Recovering/Resolving]
  - Arthralgia [Recovering/Resolving]
  - Body temperature increased [Recovered/Resolved]
  - Hypertension [Recovered/Resolved]
  - Blood cholesterol increased [Recovered/Resolved]
  - Spinal pain [Not Recovered/Not Resolved]
  - Musculoskeletal chest pain [Recovering/Resolving]
  - Pain [Recovering/Resolving]
  - Discomfort [Recovered/Resolved]
  - COVID-19 [Recovered/Resolved with Sequelae]
  - Hypertension [Not Recovered/Not Resolved]

NARRATIVE: CASE EVENT DATE: 20180101
